FAERS Safety Report 9573825 (Version 1)
Quarter: 2013Q4

REPORT INFORMATION
  Report Type: Spontaneous
  Country: US (occurrence: US)
  Receive Date: 20131001
  Receipt Date: 20131001
  Transmission Date: 20140711
  Serious: No
  Sender: FDA-Public Use
  Company Number: US-PURDUE-USA-2012-0083448

PATIENT
  Sex: Male

DRUGS (2)
  1. BUTRANS [Suspect]
     Indication: PAIN
     Dosage: 20 MCG, Q1H
     Route: 062
     Dates: end: 201202
  2. ROXICET [Concomitant]
     Indication: BREAKTHROUGH PAIN
     Dosage: 20-30 MG, PRN
     Route: 048

REACTIONS (3)
  - Application site swelling [Not Recovered/Not Resolved]
  - Application site pruritus [Recovered/Resolved]
  - Application site erosion [Not Recovered/Not Resolved]
